FAERS Safety Report 23574649 (Version 1)
Quarter: 2024Q1

REPORT INFORMATION
  Report Type: Report from Study
  Country: CO (occurrence: CO)
  Receive Date: 20240228
  Receipt Date: 20240228
  Transmission Date: 20240410
  Serious: Yes (Other)
  Sender: FDA-Public Use
  Company Number: CO-002147023-NVSC2024CO040788

PATIENT
  Sex: Female
  Weight: 42 kg

DRUGS (2)
  1. AFINITOR [Suspect]
     Active Substance: EVEROLIMUS
     Indication: Neuroendocrine tumour
     Dosage: 10 MG, QD
     Route: 048
     Dates: start: 20210505
  2. AFINITOR [Suspect]
     Active Substance: EVEROLIMUS
     Indication: Pancreatic neuroendocrine tumour

REACTIONS (7)
  - Peptic ulcer [Unknown]
  - Oesophageal ulcer [Unknown]
  - Abdominal pain upper [Unknown]
  - Eating disorder [Unknown]
  - Weight decreased [Unknown]
  - Stomatitis [Unknown]
  - Odynophagia [Unknown]
